FAERS Safety Report 19112160 (Version 1)
Quarter: 2021Q2

REPORT INFORMATION
  Report Type: Spontaneous
  Country: US (occurrence: US)
  Receive Date: 20210409
  Receipt Date: 20210409
  Transmission Date: 20210717
  Serious: Yes (Hospitalization)
  Sender: FDA-Public Use
  Company Number: None

PATIENT
  Age: 73 Year
  Sex: Male
  Weight: 98.88 kg

DRUGS (1)
  1. APIXABAN (APIXABAN 12.5MG TAB) [Suspect]
     Active Substance: APIXABAN
     Indication: DIABETES MELLITUS
     Route: 048
     Dates: start: 20210111, end: 20210307

REACTIONS (3)
  - Obstructive pancreatitis [None]
  - Vomiting [None]
  - Abdominal distension [None]

NARRATIVE: CASE EVENT DATE: 20210307
